FAERS Safety Report 8551080 (Version 3)
Quarter: 2013Q4

REPORT INFORMATION
  Report Type: Spontaneous
  Country: US (occurrence: US)
  Receive Date: 20120508
  Receipt Date: 20131226
  Transmission Date: 20140711
  Serious: Yes (Hospitalization, Other)
  Sender: FDA-Public Use
  Company Number: US-BAYER-2012-043479

PATIENT
  Age: 25 Year
  Sex: Female
  Weight: 90.7 kg

DRUGS (4)
  1. YASMIN [Suspect]
     Dosage: UNK
     Dates: start: 200608, end: 201110
  2. YAZ [Suspect]
     Dosage: UNK
     Dates: start: 200608, end: 201110
  3. FEXOFENADINE HYDROCHLORIDE [Concomitant]
     Dosage: 180 MG, UNK
  4. ALBUTEROL INHALER [Concomitant]
     Dosage: 90 MCG

REACTIONS (7)
  - Biliary colic [None]
  - Cholecystitis chronic [None]
  - Injury [None]
  - Pain [None]
  - Emotional distress [None]
  - Anxiety [None]
  - Anhedonia [None]
